FAERS Safety Report 16843989 (Version 4)
Quarter: 2019Q4

REPORT INFORMATION
  Report Type: Spontaneous
  Country: TW (occurrence: TW)
  Receive Date: 20190924
  Receipt Date: 20191126
  Transmission Date: 20200122
  Serious: Yes (Death, Hospitalization, Other)
  Sender: FDA-Public Use
  Company Number: TW-PFIZER INC-2019360311

PATIENT
  Age: 59 Year
  Sex: Male

DRUGS (1)
  1. SUTENT [Suspect]
     Active Substance: SUNITINIB MALATE
     Indication: RENAL CELL CARCINOMA
     Dosage: 50 MG, CYCLIC (DAILY, 4 WEEKS ON 2 WEEKS OFF)
     Route: 048
     Dates: start: 20190725, end: 20191004

REACTIONS (13)
  - Mouth ulceration [Recovering/Resolving]
  - Death [Fatal]
  - Asthma exercise induced [Unknown]
  - Heart rate increased [Unknown]
  - Palmar-plantar erythrodysaesthesia syndrome [Recovering/Resolving]
  - Eyelid oedema [Recovering/Resolving]
  - Haemoglobin decreased [Recovering/Resolving]
  - Dizziness [Unknown]
  - Anaemia [Unknown]
  - Platelet count decreased [Recovering/Resolving]
  - Blood albumin decreased [Recovering/Resolving]
  - Glossodynia [Recovering/Resolving]
  - Face oedema [Recovering/Resolving]

NARRATIVE: CASE EVENT DATE: 2019
